FAERS Safety Report 5546107-7 (Version None)
Quarter: 2007Q4

REPORT INFORMATION
  Report Type: 
  Country: None (occurrence: None)
  Receive Date: 20071211
  Receipt Date: 20071017
  Transmission Date: 20080405
  Serious: No
  Sender: FDA-Public Use
  Company Number: US-BRISTOL-MYERS SQUIBB COMPANY-13945282

PATIENT
  Age: 43 Year
  Sex: Female
  Weight: 62 kg

DRUGS (6)
  1. EMSAM [Suspect]
     Indication: DEPRESSION
     Route: 062
     Dates: start: 20071016
  2. LITHIUM CARBONATE [Concomitant]
  3. LAMICTAL [Concomitant]
  4. PROPRANOLOL HYDROCHLORIDE [Concomitant]
  5. NEURONTIN [Concomitant]
  6. AMBIEN [Concomitant]

REACTIONS (2)
  - APPLICATION SITE IRRITATION [None]
  - HEADACHE [None]
